FAERS Safety Report 7091056-9 (Version None)
Quarter: 2010Q4

REPORT INFORMATION
  Report Type: 
  Country: None (occurrence: None)
  Receive Date: 20101109
  Receipt Date: 20101026
  Transmission Date: 20110411
  Serious: Yes (Hospitalization)
  Sender: FDA-Public Use
  Company Number: PHHY2010FR73134

PATIENT
  Age: 63 Year
  Sex: Male

DRUGS (7)
  1. TEGRETOL [Suspect]
     Dosage: 200 MG, QD
     Route: 048
  2. AMOXICILLIN AND CLAVULANATE POTASSIUM [Suspect]
     Dosage: 1 G, TID
     Route: 042
     Dates: start: 20100817, end: 20100823
  3. ROVAMYCINE [Suspect]
     Dosage: 1.5 KIU, TID
     Route: 042
     Dates: start: 20100817, end: 20100820
  4. CRESTOR [Suspect]
     Dosage: 10 MG DAILY
     Route: 048
     Dates: start: 20100817, end: 20100822
  5. PARACETAMOL [Suspect]
     Dosage: 1 G, QID
     Route: 042
     Dates: start: 20100817, end: 20100822
  6. GLUCOPHAGE [Concomitant]
     Dosage: UNK
  7. AMAREL [Concomitant]
     Dosage: 1 MG, QD

REACTIONS (5)
  - COUGH [None]
  - HEPATIC ENZYME INCREASED [None]
  - HEPATIC STEATOSIS [None]
  - HEPATITIS CHOLESTATIC [None]
  - PYREXIA [None]
